FAERS Safety Report 6480182-0 (Version None)
Quarter: 2009Q4

REPORT INFORMATION
  Report Type: 
  Country: None (occurrence: None)
  Receive Date: 20091119
  Receipt Date: 20090803
  Transmission Date: 20100525
  Serious: No
  Sender: FDA-Public Use
  Company Number: WAES 0908USA00319

PATIENT
  Age: 47 Year
  Sex: Male

DRUGS (13)
  1. JANUVIA [Suspect]
     Indication: TYPE 2 DIABETES MELLITUS
     Dosage: 100 MG/DAILY/PO
     Route: 048
     Dates: start: 20070101, end: 20090727
  2. ALTACE [Concomitant]
  3. COREG [Concomitant]
  4. CRESTOR [Concomitant]
  5. DIGITEK [Concomitant]
  6. KLOR-CON [Concomitant]
  7. LASIX [Concomitant]
  8. PLAVIX [Concomitant]
  9. PROTONIX [Concomitant]
  10. XANAX [Concomitant]
  11. AMOXICILLIN [Concomitant]
  12. GLIPIZIDE [Concomitant]
  13. ZOLPIDEM TARTRATE [Concomitant]

REACTIONS (6)
  - CONSTIPATION [None]
  - RASH [None]
  - RASH PRURITIC [None]
  - TOOTH ABSCESS [None]
  - TOOTH IMPACTED [None]
  - URTICARIA [None]
